FAERS Safety Report 9764315 (Version 2)
Quarter: 2013Q4

REPORT INFORMATION
  Report Type: Spontaneous
  Country: JP (occurrence: JP)
  Receive Date: 20131217
  Receipt Date: 20131217
  Transmission Date: 20140711
  Serious: Yes (Hospitalization)
  Sender: FDA-Public Use
  Company Number: 2012SP000103

PATIENT
  Age: 51 Year
  Sex: Male
  Weight: 63 kg

DRUGS (11)
  1. VANCOMYCIN [Suspect]
     Indication: ENDOCARDITIS
     Dates: start: 20110706, end: 20110721
  2. NOVASTAN [Suspect]
     Indication: HEPARIN-INDUCED THROMBOCYTOPENIA
     Route: 041
     Dates: start: 20110723, end: 20110723
  3. NOVASTAN [Suspect]
     Indication: HEPARIN-INDUCED THROMBOCYTOPENIA
     Route: 041
     Dates: start: 20110723, end: 20110724
  4. NOVASTAN [Suspect]
     Indication: HEPARIN-INDUCED THROMBOCYTOPENIA
     Route: 041
     Dates: start: 20110724, end: 20110729
  5. NOVASTAN [Suspect]
     Indication: HEPARIN-INDUCED THROMBOCYTOPENIA
     Route: 041
     Dates: start: 20110729, end: 20110730
  6. RIFAMPICIN [Suspect]
     Indication: ENDOCARDITIS
     Dates: start: 20110707, end: 20110722
  7. HEPARIN [Suspect]
     Indication: ANTICOAGULANT THERAPY
     Route: 041
     Dates: start: 20110716, end: 20110723
  8. ARBEKACIN SULFATE [Suspect]
     Indication: ENDOCARDITIS
     Route: 051
     Dates: start: 20110707, end: 20110721
  9. WARFARIN [Concomitant]
     Indication: ANTICOAGULANT THERAPY
     Dates: start: 20110617
  10. FUROSEMIDE [Concomitant]
  11. ZYVOX [Concomitant]
     Indication: PRODUCT USED FOR UNKNOWN INDICATION
     Dates: start: 20110721

REACTIONS (2)
  - Pyrexia [Recovered/Resolved]
  - Eosinophilia [Recovered/Resolved]
